FAERS Safety Report 4690653-5 (Version None)
Quarter: 2005Q2

REPORT INFORMATION
  Report Type: 
  Country: None (occurrence: None)
  Receive Date: 20050615
  Receipt Date: 20050601
  Transmission Date: 20051028
  Serious: Yes (Hospitalization)
  Sender: FDA-Public Use
  Company Number: JP-GLAXOSMITHKLINE-B0383302A

PATIENT
  Age: 85 Year
  Sex: Female

DRUGS (6)
  1. VALTREX [Suspect]
     Indication: HERPES ZOSTER
     Dosage: 1000MG THREE TIMES PER DAY
     Route: 048
     Dates: start: 20050419, end: 20050421
  2. PERSANTIN [Concomitant]
     Indication: ANGINA PECTORIS
     Dosage: 3TAB PER DAY
     Route: 048
     Dates: end: 20050421
  3. KARIKUROMONE [Concomitant]
     Indication: ANGINA PECTORIS
     Dosage: 3UNIT PER DAY
     Route: 048
     Dates: end: 20050421
  4. ROCORNAL [Concomitant]
     Indication: ANGINA PECTORIS
     Dosage: 3TAB PER DAY
     Route: 048
     Dates: end: 20050421
  5. CONIEL [Concomitant]
     Indication: ANGINA PECTORIS
     Dosage: 1TAB PER DAY
     Route: 048
     Dates: end: 20050421
  6. MEVALOTIN [Concomitant]
     Indication: HYPERLIPIDAEMIA
     Dosage: 1TAB PER DAY
     Route: 048
     Dates: end: 20050421

REACTIONS (7)
  - BLOOD CREATININE INCREASED [None]
  - BLOOD UREA INCREASED [None]
  - COORDINATION ABNORMAL [None]
  - DYSSTASIA [None]
  - MUSCULAR WEAKNESS [None]
  - OEDEMA PERIPHERAL [None]
  - RENAL IMPAIRMENT [None]
